FAERS Safety Report 9310880 (Version 1)
Quarter: 2013Q2

REPORT INFORMATION
  Report Type: Spontaneous
  Country: US (occurrence: None)
  Receive Date: 20130523
  Receipt Date: 20130523
  Transmission Date: 20140414
  Serious: Yes (Hospitalization)
  Sender: FDA-Public Use
  Company Number: None

PATIENT
  Age: 45 Year
  Sex: Male
  Weight: 112.7 kg

DRUGS (1)
  1. MORPHINE [Suspect]
     Indication: PAIN
     Route: 048
     Dates: start: 20130516, end: 20130516

REACTIONS (2)
  - Mental status changes [None]
  - Incorrect dose administered [None]
